FAERS Safety Report 13899044 (Version 1)
Quarter: 2017Q3

REPORT INFORMATION
  Report Type: Report from Study
  Country: AR (occurrence: AR)
  Receive Date: 20170824
  Receipt Date: 20170824
  Transmission Date: 20171127
  Serious: Yes (Death)
  Sender: FDA-Public Use
  Company Number: AR-FERRINGPH-2016FE05864

PATIENT

DRUGS (1)
  1. DEGARELIX [Suspect]
     Active Substance: DEGARELIX
     Indication: PROSTATE CANCER
     Dosage: UNK
     Route: 058
     Dates: start: 201601, end: 201701

REACTIONS (6)
  - Prostate cancer [Unknown]
  - Selective eating disorder [Unknown]
  - Depressive symptom [Unknown]
  - Myocardial infarction [Fatal]
  - Decreased appetite [Unknown]
  - Pain [Unknown]

NARRATIVE: CASE EVENT DATE: 2017
